FAERS Safety Report 14513347 (Version 1)
Quarter: 2018Q1

REPORT INFORMATION
  Report Type: Spontaneous
  Country: FR (occurrence: FR)
  Receive Date: 20180209
  Receipt Date: 20180209
  Transmission Date: 20180509
  Serious: Yes (Hospitalization)
  Sender: FDA-Public Use
  Company Number: FR-PFIZER INC-2018051352

PATIENT
  Age: 44 Year
  Sex: Female
  Weight: 40 kg

DRUGS (2)
  1. DOCETAXEL ACCORD [Suspect]
     Active Substance: DOCETAXEL
     Dosage: 120 MG, UNK
     Route: 041
     Dates: start: 20171204, end: 20171204
  2. MEDROL [Suspect]
     Active Substance: METHYLPREDNISOLONE
     Indication: PREMEDICATION
     Dosage: 1 DF, 1X/DAY
     Route: 048
     Dates: start: 20171203, end: 20171205

REACTIONS (4)
  - Vomiting [Recovered/Resolved]
  - Pyrexia [Recovered/Resolved]
  - Chills [Recovered/Resolved]
  - Nausea [Recovered/Resolved]

NARRATIVE: CASE EVENT DATE: 20171204
